FAERS Safety Report 10245953 (Version 3)
Quarter: 2014Q3

REPORT INFORMATION
  Report Type: Spontaneous
  Country: RU (occurrence: RU)
  Receive Date: 20140619
  Receipt Date: 20140703
  Transmission Date: 20150326
  Serious: Yes (Disabling, Other)
  Sender: FDA-Public Use
  Company Number: RU-009507513-1406RUS004154

PATIENT
  Sex: Male

DRUGS (1)
  1. PROSCAR [Suspect]
     Active Substance: FINASTERIDE
     Indication: ANDROGENETIC ALOPECIA
     Dosage: 1 MG, DAILY
     Route: 048
     Dates: start: 20100914, end: 20110312

REACTIONS (58)
  - Autonomic neuropathy [Unknown]
  - Disturbance in attention [Not Recovered/Not Resolved]
  - Insulin resistance [Unknown]
  - Nervous system disorder [Not Recovered/Not Resolved]
  - Dry skin [Unknown]
  - Testicular disorder [Unknown]
  - Androgens decreased [Unknown]
  - Breast swelling [Not Recovered/Not Resolved]
  - Wrong technique in drug usage process [Unknown]
  - Autonomic nervous system imbalance [Unknown]
  - Irritability [Unknown]
  - Cutis laxa [Unknown]
  - Scar [Unknown]
  - Dyslipidaemia [Unknown]
  - Androgenetic alopecia [Unknown]
  - Pancreatic fibrosis [Unknown]
  - Hypogonadism [Unknown]
  - Loss of libido [Not Recovered/Not Resolved]
  - Aphasia [Not Recovered/Not Resolved]
  - Libido increased [Unknown]
  - Sweat gland disorder [Unknown]
  - Fatigue [Unknown]
  - Polyuria [Unknown]
  - Central obesity [Not Recovered/Not Resolved]
  - Urinary retention [Unknown]
  - Pectus excavatum [Not Recovered/Not Resolved]
  - Depression [Unknown]
  - Coagulopathy [Unknown]
  - Rash pustular [Unknown]
  - Memory impairment [Not Recovered/Not Resolved]
  - Non-alcoholic steatohepatitis [Unknown]
  - Dizziness [Unknown]
  - Depression [Unknown]
  - Drug administration error [Unknown]
  - Hair growth abnormal [Not Recovered/Not Resolved]
  - Male sexual dysfunction [Not Recovered/Not Resolved]
  - Anorgasmia [Not Recovered/Not Resolved]
  - Pallor [Unknown]
  - Cognitive disorder [Not Recovered/Not Resolved]
  - Ejaculation failure [Not Recovered/Not Resolved]
  - Skin atrophy [Unknown]
  - Blood cholesterol increased [Unknown]
  - Gastrointestinal disorder [Unknown]
  - Prostatic fibrosis [Unknown]
  - Prostatic disorder [Unknown]
  - Speech disorder [Not Recovered/Not Resolved]
  - Weight increased [Unknown]
  - Penis disorder [Not Recovered/Not Resolved]
  - Fat redistribution [Not Recovered/Not Resolved]
  - Dyspepsia [Unknown]
  - Spermatocele [Unknown]
  - Hormone level abnormal [Unknown]
  - Asthenia [Unknown]
  - Cellulitis [Unknown]
  - Skin odour abnormal [Unknown]
  - Insomnia [Unknown]
  - Bradyphrenia [Not Recovered/Not Resolved]
  - Erectile dysfunction [Not Recovered/Not Resolved]

NARRATIVE: CASE EVENT DATE: 20100914
